FAERS Safety Report 9665840 (Version 1)
Quarter: 2013Q4

REPORT INFORMATION
  Report Type: Spontaneous
  Country: FR (occurrence: FR)
  Receive Date: 20131104
  Receipt Date: 20131104
  Transmission Date: 20140711
  Serious: Yes (Other)
  Sender: FDA-Public Use
  Company Number: FR-009507513-1310FRA012493

PATIENT
  Age: 61 Year
  Sex: Male
  Weight: 78 kg

DRUGS (10)
  1. VICTRELIS [Suspect]
     Indication: HEPATITIS C
     Dosage: 800 MG, TID
     Dates: start: 20110411, end: 20120209
  2. VIRAFERONPEG [Suspect]
     Indication: HEPATITIS C
     Dosage: 120 MICROGRAM, QW
     Route: 058
     Dates: start: 20110315, end: 20120209
  3. RIBAVIRIN [Suspect]
     Indication: HEPATITIS C
     Dosage: 1400 MG, QD
     Dates: start: 20110315, end: 20120209
  4. KARDEGIC [Concomitant]
     Indication: HYPERTENSION
     Dosage: 75 MG, QD
     Dates: start: 1997
  5. ENALAPRIL MALEATE [Concomitant]
     Indication: HYPERTENSION
     Dosage: 20 MG, QD
     Dates: start: 1997
  6. VERAPAMIL [Concomitant]
     Indication: HYPERTENSION
     Dosage: 120 MG, QD
     Dates: start: 20110311
  7. NAFTILUX [Concomitant]
     Indication: RAYNAUD^S PHENOMENON
     Dosage: 200 MG, TID
     Dates: start: 1997
  8. TOCO [Concomitant]
     Indication: VITAMIN SUPPLEMENTATION
     Dosage: 500 MG, BID
     Dates: start: 20110311
  9. ALLOPURINOL [Concomitant]
     Indication: HYPERURICAEMIA
     Dosage: 200 MG, QD
     Dates: start: 20110509
  10. SEROPLEX [Concomitant]
     Indication: DEPRESSION
     Dosage: 5 MG, QD
     Dates: start: 20110926

REACTIONS (1)
  - Hepatocellular carcinoma [Recovered/Resolved]
